FAERS Safety Report 13631491 (Version 1)
Quarter: 2017Q2

REPORT INFORMATION
  Report Type: Spontaneous
  Country: JP (occurrence: JP)
  Receive Date: 20170608
  Receipt Date: 20170608
  Transmission Date: 20170830
  Serious: Yes (Hospitalization)
  Sender: FDA-Public Use
  Company Number: PHJP2017JP018134

PATIENT
  Sex: Female

DRUGS (3)
  1. EXJADE [Suspect]
     Active Substance: DEFERASIROX
     Indication: APLASTIC ANAEMIA
     Dosage: UNK
     Route: 065
     Dates: start: 201002, end: 201201
  2. NEORAL [Suspect]
     Active Substance: CYCLOSPORINE
     Indication: APLASTIC ANAEMIA
     Dosage: UNK
     Route: 065
     Dates: end: 201003
  3. DEFEROXAMINE MESYLATE. [Concomitant]
     Active Substance: DEFEROXAMINE MESYLATE
     Indication: PRODUCT USED FOR UNKNOWN INDICATION
     Dosage: UNK
     Route: 065
     Dates: start: 201105

REACTIONS (9)
  - Decreased appetite [Unknown]
  - Therapeutic response decreased [Unknown]
  - Pneumonia [Recovering/Resolving]
  - Pyrexia [Unknown]
  - Hypoxia [Unknown]
  - Product use in unapproved indication [Unknown]
  - Gastroenteritis [Unknown]
  - Abdominal pain [Unknown]
  - Gastroduodenal ulcer [Unknown]

NARRATIVE: CASE EVENT DATE: 201003
